FAERS Safety Report 8385185-7 (Version None)
Quarter: 2012Q2

REPORT INFORMATION
  Report Type: 
  Country: None (occurrence: None)
  Receive Date: 20120525
  Receipt Date: 20120521
  Transmission Date: 20120825
  Serious: Yes (Hospitalization, Other)
  Sender: FDA-Public Use
  Company Number: US-AMGEN-USASP2012031756

PATIENT
  Age: 68 Year
  Sex: Male

DRUGS (1)
  1. ENBREL [Suspect]
     Indication: RHEUMATOID ARTHRITIS
     Dosage: 50 MG, QWK
     Dates: start: 19981201

REACTIONS (7)
  - FATIGUE [None]
  - BRONCHITIS [None]
  - PLEURAL EFFUSION [None]
  - DIVERTICULITIS [None]
  - RHINORRHOEA [None]
  - ARTHRALGIA [None]
  - MYALGIA [None]
